FAERS Safety Report 25779995 (Version 1)
Quarter: 2025Q3

REPORT INFORMATION
  Report Type: Spontaneous
  Country: US (occurrence: None)
  Receive Date: 20250908
  Receipt Date: 20250908
  Transmission Date: 20251021
  Serious: Yes (Hospitalization)
  Sender: FDA-CTU
  Company Number: None

PATIENT
  Age: 72 Year
  Sex: Female
  Weight: 127 kg

DRUGS (16)
  1. COLLAGENASE SANTYL [Suspect]
     Active Substance: COLLAGENASE CLOSTRIDIUM HISTOLYTICUM
     Indication: Wound
     Dosage: DAILY TOPICAL
     Route: 061
     Dates: start: 20250823
  2. Ferosul 325 mg tablets [Concomitant]
  3. FLUTICASONE [Concomitant]
     Active Substance: FLUTICASONE
  4. Vitamin D 1.25 mg capsules [Concomitant]
  5. Pregabalin 300 mg capsules [Concomitant]
  6. Zonisamide 100 mg capsules [Concomitant]
  7. Vitamin B-12 1000mcg tablets [Concomitant]
  8. OMEPRAZOLE [Concomitant]
     Active Substance: OMEPRAZOLE
  9. METOPROLOL TARTRATE [Concomitant]
     Active Substance: METOPROLOL TARTRATE
  10. Duloxetine 20 mg capsules [Concomitant]
  11. Potassium Chloride ER 10 MEQ tablets [Concomitant]
  12. Clotrimazole-betamethasone 1-0.05% cream [Concomitant]
  13. Levothyroxine 125mcg tablets [Concomitant]
  14. Clonazepam 1 mg tablets [Concomitant]
  15. Nystatin 100000 unit/gm powder [Concomitant]
  16. FUROSEMIDE [Concomitant]
     Active Substance: FUROSEMIDE

REACTIONS (3)
  - Wound infection [None]
  - Cellulitis [None]
  - Necrosis [None]

NARRATIVE: CASE EVENT DATE: 20250903
